FAERS Safety Report 5049281-4 (Version None)
Quarter: 2006Q3

REPORT INFORMATION
  Report Type: 
  Country: None (occurrence: None)
  Receive Date: 20060706
  Receipt Date: 20060621
  Transmission Date: 20061208
  Serious: Yes (Death)
  Sender: FDA-Public Use
  Company Number: 220022

PATIENT
  Age: 37 Year
  Sex: Male
  Weight: 63 kg

DRUGS (7)
  1. AVASTIN [Suspect]
     Indication: COLORECTAL CANCER
     Dosage: 270 MG, Q2W, INTRAVENOUS
     Route: 042
     Dates: start: 20050606, end: 20051109
  2. CAPECITABINE (CAPECITABINE) [Concomitant]
  3. IRINOTECAN HCL [Concomitant]
  4. RINOBANEDIF (ANTAZOLINE NOS, BACITRACIN ZINC, EUCALYPTOL, NEOMYCIN SUL [Concomitant]
  5. OMEPRAZOLE [Concomitant]
  6. DARBEPOETIN ALFA (DARBEPOETIN ALFA) [Concomitant]
  7. MEDICATION (INGREDIENT) (GENERIC COMPONENT (S)) [Concomitant]

REACTIONS (4)
  - CHEST PAIN [None]
  - DIZZINESS [None]
  - LOSS OF CONSCIOUSNESS [None]
  - SUDDEN DEATH [None]
